FAERS Safety Report 23571250 (Version 1)
Quarter: 2024Q1

REPORT INFORMATION
  Report Type: Report from Study
  Country: DE (occurrence: DE)
  Receive Date: 20240227
  Receipt Date: 20240227
  Transmission Date: 20240409
  Serious: Yes (Hospitalization, Disabling, Other)
  Sender: FDA-Public Use
  Company Number: DE-TAKEDA-2024TUS018208

PATIENT
  Age: 62 Year
  Sex: Male

DRUGS (8)
  1. TEDUGLUTIDE [Suspect]
     Active Substance: TEDUGLUTIDE
     Indication: Short-bowel syndrome
     Dosage: 2.7 MILLIGRAM, QD
     Route: 042
     Dates: start: 20230418
  2. TEDUGLUTIDE [Suspect]
     Active Substance: TEDUGLUTIDE
     Indication: Short-bowel syndrome
     Dosage: 2.7 MILLIGRAM, QD
     Route: 042
     Dates: start: 20230418
  3. TEDUGLUTIDE [Suspect]
     Active Substance: TEDUGLUTIDE
     Indication: Short-bowel syndrome
     Dosage: 2.7 MILLIGRAM, QD
     Route: 042
     Dates: start: 20230418
  4. TEDUGLUTIDE [Suspect]
     Active Substance: TEDUGLUTIDE
     Indication: Short-bowel syndrome
     Dosage: 2.7 MILLIGRAM, QD
     Route: 042
     Dates: start: 20230418
  5. LEVOTHYROXINE SODIUM [Concomitant]
     Active Substance: LEVOTHYROXINE SODIUM
     Indication: Hypothyroidism
     Dosage: 125 MICROGRAM, QD
     Route: 048
  6. METAMIZOLE [Concomitant]
     Active Substance: METAMIZOLE
     Indication: Pain
     Dosage: 500 MILLIGRAM
     Route: 048
  7. Tamsulosin retard zentiva [Concomitant]
     Indication: Prophylaxis
     Dosage: 0.40 MILLIGRAM, QD
     Route: 048
  8. Kabivital [Concomitant]
     Indication: Vitamin D deficiency
     Dosage: 2000 INTERNATIONAL UNIT, BID
     Route: 045

REACTIONS (1)
  - Stoma complication [Recovered/Resolved with Sequelae]

NARRATIVE: CASE EVENT DATE: 20231201
